FAERS Safety Report 6406634-7 (Version None)
Quarter: 2009Q4

REPORT INFORMATION
  Report Type: 
  Country: None (occurrence: None)
  Receive Date: 20091014
  Receipt Date: 20091001
  Transmission Date: 20100525
  Serious: Yes (Disabling)
  Sender: FDA-Public Use
  Company Number: 2009AL006418

PATIENT
  Age: 44 Year
  Sex: Male

DRUGS (5)
  1. DOXAZOSIN MESYLATE [Suspect]
     Indication: HYPERTENSION
     Dosage: 4 MG;PO
     Route: 048
     Dates: start: 20030101, end: 20090715
  2. CYCLOSPORINE [Concomitant]
  3. MYCOPHENOLIC ACID [Concomitant]
  4. ALFACALCIDOL [Concomitant]
  5. RAMIPRIL [Concomitant]

REACTIONS (4)
  - BLOOD LACTIC ACID INCREASED [None]
  - BURNING SENSATION [None]
  - GAIT DISTURBANCE [None]
  - PAIN IN EXTREMITY [None]
